FAERS Safety Report 21382465 (Version 1)
Quarter: 2022Q3

REPORT INFORMATION
  Report Type: Spontaneous
  Country: CN (occurrence: None)
  Receive Date: 20220927
  Receipt Date: 20220927
  Transmission Date: 20221027
  Serious: Yes (Other)
  Sender: FDA-Public Use
  Company Number: CN-ROCHE-3185329

PATIENT
  Age: 75 Year
  Sex: Female

DRUGS (20)
  1. TECENTRIQ [Suspect]
     Active Substance: ATEZOLIZUMAB
     Indication: Small cell lung cancer
     Dosage: 1 - 2 CYCLE, DAY 1
     Route: 041
     Dates: start: 20210726
  2. TECENTRIQ [Suspect]
     Active Substance: ATEZOLIZUMAB
     Indication: Metastases to bone
     Dosage: 3-4 CYCLE, DAY 1
     Route: 041
     Dates: start: 20210916
  3. TECENTRIQ [Suspect]
     Active Substance: ATEZOLIZUMAB
     Indication: Metastases to lymph nodes
     Dosage: DAY 1
     Route: 041
     Dates: start: 20211114
  4. TECENTRIQ [Suspect]
     Active Substance: ATEZOLIZUMAB
     Route: 041
     Dates: start: 20220222
  5. ETOPOSIDE [Concomitant]
     Active Substance: ETOPOSIDE
     Indication: Small cell lung cancer
     Dosage: 1-2 CYCLE, DAY 1-5
     Route: 041
     Dates: start: 20210726
  6. ETOPOSIDE [Concomitant]
     Active Substance: ETOPOSIDE
     Indication: Metastases to lymph nodes
     Dosage: 3-4 CYCLE, DAY 1-4
     Route: 041
     Dates: start: 20210916
  7. ETOPOSIDE [Concomitant]
     Active Substance: ETOPOSIDE
     Indication: Metastases to bone
  8. CARBOPLATIN [Concomitant]
     Active Substance: CARBOPLATIN
     Indication: Small cell lung cancer
     Dosage: 1-2 CYCLE, DAY 1
     Route: 041
     Dates: start: 20210726
  9. CARBOPLATIN [Concomitant]
     Active Substance: CARBOPLATIN
     Indication: Metastases to lymph nodes
     Dosage: 3-4 CYCLE, DAY 1
     Route: 041
     Dates: start: 20210916
  10. CARBOPLATIN [Concomitant]
     Active Substance: CARBOPLATIN
     Indication: Metastases to bone
     Dosage: DAY 1
     Route: 041
     Dates: start: 20211114
  11. CARBOPLATIN [Concomitant]
     Active Substance: CARBOPLATIN
     Route: 041
     Dates: start: 20220222
  12. ZOLEDRONIC ACID [Concomitant]
     Active Substance: ZOLEDRONIC ACID
     Indication: Small cell lung cancer
     Dosage: 1-2 CYCLE
     Route: 041
     Dates: start: 20210726
  13. ZOLEDRONIC ACID [Concomitant]
     Active Substance: ZOLEDRONIC ACID
     Indication: Metastases to lymph nodes
     Dosage: 3-4 CYCLE
     Route: 041
     Dates: start: 20210916
  14. ZOLEDRONIC ACID [Concomitant]
     Active Substance: ZOLEDRONIC ACID
     Indication: Metastases to bone
     Route: 041
     Dates: start: 20211114
  15. ZOLEDRONIC ACID [Concomitant]
     Active Substance: ZOLEDRONIC ACID
     Route: 041
     Dates: start: 20220222
  16. ENTECAVIR [Concomitant]
     Active Substance: ENTECAVIR
     Indication: Chronic hepatitis B
     Dosage: 1 - 2 CYCLE
     Route: 048
     Dates: start: 20210726
  17. ENTECAVIR [Concomitant]
     Active Substance: ENTECAVIR
     Dosage: 3-4 CYCLE
     Route: 048
     Dates: start: 20210916
  18. ENTECAVIR [Concomitant]
     Active Substance: ENTECAVIR
     Route: 048
     Dates: start: 20211114
  19. ENTECAVIR [Concomitant]
     Active Substance: ENTECAVIR
     Route: 048
     Dates: start: 20220222
  20. LEVOTHYROXINE SODIUM [Concomitant]
     Active Substance: LEVOTHYROXINE SODIUM
     Indication: Hypothyroidism
     Route: 048
     Dates: start: 20220222

REACTIONS (4)
  - Gastrointestinal disorder [Recovered/Resolved]
  - Haematotoxicity [Recovered/Resolved]
  - Fatigue [Not Recovered/Not Resolved]
  - Alopecia [Unknown]
